FAERS Safety Report 14045666 (Version 1)
Quarter: 2017Q4

REPORT INFORMATION
  Report Type: Report from Study
  Country: US (occurrence: US)
  Receive Date: 20171005
  Receipt Date: 20171005
  Transmission Date: 20180321
  Serious: Yes (Other)
  Sender: FDA-Public Use
  Company Number: US-BAYER-2017-168447

PATIENT
  Age: 55 Year
  Sex: Male

DRUGS (1)
  1. STIVARGA [Suspect]
     Active Substance: REGORAFENIB
     Indication: COLORECTAL CANCER
     Dosage: 160 MG, QD
     Route: 048
     Dates: start: 20170824

REACTIONS (12)
  - Decreased appetite [None]
  - Abdominal pain [None]
  - Erythema [None]
  - Pain in extremity [None]
  - Weight decreased [None]
  - Vomiting [None]
  - Abdominal pain [None]
  - Fatigue [None]
  - Headache [None]
  - Drug dose omission [None]
  - Blood pressure increased [None]
  - Fatigue [None]

NARRATIVE: CASE EVENT DATE: 2017
